FAERS Safety Report 8920243 (Version 4)
Quarter: 2014Q1

REPORT INFORMATION
  Report Type: Spontaneous
  Country: JP (occurrence: JP)
  Receive Date: 20121122
  Receipt Date: 20140124
  Transmission Date: 20141002
  Serious: Yes (Death, Hospitalization)
  Sender: FDA-Public Use
  Company Number: PHHY2012JP105516

PATIENT
  Age: 38 Year
  Sex: Male

DRUGS (3)
  1. AFINITOR [Suspect]
     Indication: PANCREATIC NEUROENDOCRINE TUMOUR
     Dosage: 5 MG, DAILY
     Route: 048
  2. SANDOSTATIN [Concomitant]
     Indication: PANCREATIC NEUROENDOCRINE TUMOUR
     Dosage: 200 UG
     Route: 058
  3. SANDOSTATIN LAR [Concomitant]
     Indication: PANCREATIC NEUROENDOCRINE TUMOUR
     Dosage: 20 MG
     Route: 030

REACTIONS (9)
  - Metabolic acidosis [Fatal]
  - Disseminated intravascular coagulation [Fatal]
  - Prerenal failure [Fatal]
  - Cellulitis [Fatal]
  - Fungal sepsis [Fatal]
  - Stomatitis [Recovered/Resolved]
  - Electrolyte imbalance [Unknown]
  - Vasoactive intestinal polypeptide increased [Unknown]
  - Diarrhoea [Unknown]
